FAERS Safety Report 4880239-1 (Version None)
Quarter: 2005Q4

REPORT INFORMATION
  Report Type: 
  Country: None (occurrence: None)
  Receive Date: 20051223
  Receipt Date: 20051024
  Transmission Date: 20060501
  Serious: No
  Sender: FDA-Public Use
  Company Number: 05P-163-0314985-00

PATIENT
  Age: 55 Year
  Sex: Female
  Weight: 90.7194 kg

DRUGS (16)
  1. HUMIRA [Suspect]
     Indication: RHEUMATOID ARTHRITIS
     Dosage: SEE IMAGE
     Route: 058
     Dates: start: 20050829
  2. PHENYTOIN SODIUM [Concomitant]
  3. DYAZIDE [Concomitant]
  4. FEXOFENADINE HYDROCHLORIDE [Concomitant]
  5. MELOXICAM [Concomitant]
  6. ESTRATEST H.S. [Concomitant]
  7. NITROFURANTOIN [Concomitant]
  8. PAXIL CR [Concomitant]
  9. METHOTREXATE [Concomitant]
  10. CALCIUM GLUCONATE [Concomitant]
  11. AMITRIPTYLINE HCL [Concomitant]
  12. DEXTROL LA [Concomitant]
  13. CRESTOR [Concomitant]
  14. FLOMAX [Concomitant]
  15. ESOMEPRAZOLE [Concomitant]
  16. LANSOPRAZOLE [Concomitant]

REACTIONS (9)
  - ASTHENIA [None]
  - BREAST PAIN [None]
  - COUGH [None]
  - DIZZINESS [None]
  - HEADACHE [None]
  - HERPES ZOSTER [None]
  - HYPOAESTHESIA [None]
  - PARAESTHESIA [None]
  - VISION BLURRED [None]
